FAERS Safety Report 15669526 (Version 2)
Quarter: 2019Q3

REPORT INFORMATION
  Report Type: Report from Study
  Country: JP (occurrence: JP)
  Receive Date: 20181129
  Receipt Date: 20190909
  Transmission Date: 20191004
  Serious: Yes (Hospitalization, Other)
  Sender: FDA-Public Use
  Company Number: JP-ACTELION-A-CH2018-182077

PATIENT
  Age: 82 Year
  Sex: Female
  Weight: 41.6 kg

DRUGS (16)
  1. MICARDIS [Concomitant]
     Active Substance: TELMISARTAN
  2. NEXIUM [Concomitant]
     Active Substance: ESOMEPRAZOLE MAGNESIUM
  3. OPSUMIT [Suspect]
     Active Substance: MACITENTAN
     Indication: PULMONARY ARTERIAL HYPERTENSION
     Dosage: 10 MG, QD
     Route: 048
     Dates: start: 20170615, end: 20190124
  4. EPADEL [Concomitant]
     Active Substance: ICOSAPENT
  5. NIFEDIPINE. [Concomitant]
     Active Substance: NIFEDIPINE
  6. TEPRENONE [Concomitant]
     Active Substance: TEPRENONE
  7. REVATIO [Concomitant]
     Active Substance: SILDENAFIL CITRATE
  8. CELECOX [Concomitant]
     Active Substance: CELECOXIB
  9. LANSOPRAZOLE. [Concomitant]
     Active Substance: LANSOPRAZOLE
  10. BERAPROST SODIUM [Concomitant]
     Active Substance: BERAPROST SODIUM
  11. AMITIZA [Concomitant]
     Active Substance: LUBIPROSTONE
  12. OPSUMIT [Suspect]
     Active Substance: MACITENTAN
     Dosage: 10 MG, QD
     Route: 048
     Dates: start: 20190411, end: 20190704
  13. CARVEDILOL. [Concomitant]
     Active Substance: CARVEDILOL
  14. CILNIDIPINE [Concomitant]
     Active Substance: CILNIDIPINE
  15. BROTIZOLAM [Concomitant]
     Active Substance: BROTIZOLAM
  16. SENNOSIDE [Concomitant]
     Active Substance: SENNOSIDES

REACTIONS (7)
  - Pneumonia staphylococcal [Recovering/Resolving]
  - Influenza [Recovering/Resolving]
  - Anaemia [Not Recovered/Not Resolved]
  - Transfusion [Not Recovered/Not Resolved]
  - Bronchitis [Recovering/Resolving]
  - Platelet count decreased [Recovered/Resolved]
  - White blood cell count decreased [Not Recovered/Not Resolved]

NARRATIVE: CASE EVENT DATE: 20170817
